FAERS Safety Report 7457578-3 (Version None)
Quarter: 2011Q2

REPORT INFORMATION
  Report Type: 
  Country: None (occurrence: None)
  Receive Date: 20110504
  Receipt Date: 20110421
  Transmission Date: 20111010
  Serious: No
  Sender: FDA-Public Use
  Company Number: US-B.I. PHARMACEUTICALS,INC./RIDGEFIELD-2011-BP-05656BP

PATIENT
  Sex: Male

DRUGS (11)
  1. HYZAAR [Concomitant]
     Indication: HYPERTENSION
  2. PRADAXA [Suspect]
     Indication: ATRIAL FIBRILLATION
     Dosage: 150 MG
     Route: 048
     Dates: start: 20101224
  3. MAGNESIUM [Concomitant]
     Dosage: 500 MG
  4. ALLOPURINOL [Concomitant]
     Indication: GOUT
     Dosage: 150 MG
  5. TYLENOL-500 [Concomitant]
     Dosage: 1000 MG
  6. VYTORIN [Concomitant]
     Indication: BLOOD CHOLESTEROL INCREASED
  7. LOSARTAN POTASSIUM [Concomitant]
     Indication: BLOOD PRESSURE
     Dosage: 50 MG
  8. FISH OIL OMEGA 3 [Concomitant]
     Dosage: 2400 MG
  9. CHLORTHALIDONE [Concomitant]
     Indication: DIURETIC THERAPY
  10. PRADAXA [Suspect]
     Indication: UNEVALUABLE EVENT
  11. AMIODARONE HYDROCHLORIDE [Concomitant]
     Indication: ATRIAL FIBRILLATION

REACTIONS (1)
  - ERYTHEMA [None]
